FAERS Safety Report 7401901-2 (Version None)
Quarter: 2011Q2

REPORT INFORMATION
  Report Type: 
  Country: None (occurrence: None)
  Receive Date: 20110408
  Receipt Date: 20110405
  Transmission Date: 20111010
  Serious: No
  Sender: FDA-Public Use
  Company Number: US-TEVA-275127USA

PATIENT
  Sex: Female
  Weight: 99.88 kg

DRUGS (1)
  1. PLAN B ONE-STEP [Suspect]
     Indication: POST COITAL CONTRACEPTION
     Route: 048
     Dates: start: 20110322, end: 20110322

REACTIONS (5)
  - MENSTRUATION IRREGULAR [None]
  - HEADACHE [None]
  - BACK PAIN [None]
  - FATIGUE [None]
  - MUSCLE STRAIN [None]
